FAERS Safety Report 9218768 (Version 1)
Quarter: 2013Q1

REPORT INFORMATION
  Report Type: Spontaneous
  Country: US (occurrence: None)
  Receive Date: 20120827
  Receipt Date: 20120827
  Transmission Date: 20140127
  Serious: No
  Sender: FDA-Public Use
  Company Number: 354382

PATIENT
  Age: 58 Year
  Sex: Male

DRUGS (2)
  1. LEVEMIR FLEXPEN (INSULIN DETEMIR) SOLUTION FOR INJECTION, .0024 MOL/L [Suspect]
     Indication: TYPE 2 DIABETES MELLITUS
     Route: 058
     Dates: start: 20120528
  2. VICTOZA (LIRAGLUTIDE) SOLUTION FOR INJECTION 6MG/ML [Concomitant]
     Indication: TYPE 2 DIABETES MELLITUS
     Route: 058
     Dates: start: 20120615

REACTIONS (4)
  - Dry mouth [None]
  - Psychomotor hyperactivity [None]
  - Headache [None]
  - Nausea [None]
